FAERS Safety Report 10354900 (Version 1)
Quarter: 2014Q3

REPORT INFORMATION
  Report Type: Spontaneous
  Country: US (occurrence: US)
  Receive Date: 20140731
  Receipt Date: 20140731
  Transmission Date: 20150326
  Serious: Yes (Hospitalization, Other)
  Sender: FDA-Public Use
  Company Number: US-TEVA-498132USA

PATIENT
  Age: 43 Year
  Sex: Male

DRUGS (4)
  1. DOXYCYCLINE. [Concomitant]
     Active Substance: DOXYCYCLINE
     Indication: Q FEVER
     Route: 065
  2. HYDROXYCHLOROQUINE [Interacting]
     Active Substance: HYDROXYCHLOROQUINE
     Indication: Q FEVER
     Dosage: 300MG DAILY
     Route: 065
  3. CIPROFLOXACIN. [Suspect]
     Active Substance: CIPROFLOXACIN
     Indication: Q FEVER
     Route: 065
  4. RIFAMPICIN [Interacting]
     Active Substance: RIFAMPIN
     Indication: Q FEVER
     Dosage: 600MG DAILY
     Route: 065

REACTIONS (5)
  - Nausea [Unknown]
  - Hepatic enzyme increased [Unknown]
  - Drug interaction [Recovered/Resolved]
  - Acute psychosis [Recovered/Resolved]
  - Vomiting [Unknown]
